FAERS Safety Report 7605558-7 (Version None)
Quarter: 2011Q3

REPORT INFORMATION
  Report Type: 
  Country: None (occurrence: None)
  Receive Date: 20110713
  Receipt Date: 20110701
  Transmission Date: 20111222
  Serious: Yes (Life-Threatening, Hospitalization, Other)
  Sender: FDA-Public Use
  Company Number: US-BAYER-2010-004773

PATIENT
  Age: 34 Year
  Sex: Female
  Weight: 79.365 kg

DRUGS (2)
  1. YAZ [Suspect]
     Indication: CONTRACEPTION
     Dosage: UNK
     Dates: start: 20090601, end: 20100401
  2. YAZ [Suspect]
     Indication: MENSTRUATION IRREGULAR

REACTIONS (7)
  - FATIGUE [None]
  - ANXIETY [None]
  - PAIN [None]
  - ASTHENIA [None]
  - CHOLELITHIASIS [None]
  - GALLBLADDER NON-FUNCTIONING [None]
  - ORGAN FAILURE [None]
